FAERS Safety Report 7431212-0 (Version None)
Quarter: 2011Q2

REPORT INFORMATION
  Report Type: 
  Country: None (occurrence: None)
  Receive Date: 20110421
  Receipt Date: 20110418
  Transmission Date: 20111010
  Serious: Yes (Other)
  Sender: FDA-Public Use
  Company Number: JP-MERCK-1104USA01467

PATIENT
  Age: 81 Year
  Sex: Female

DRUGS (6)
  1. SENNOSIDES [Concomitant]
     Route: 048
  2. PEPCID RPD [Suspect]
     Route: 048
     Dates: start: 20100806, end: 20110414
  3. RIMATIL [Concomitant]
     Route: 048
  4. CANDESARTAN CILEXETIL [Concomitant]
     Route: 048
  5. LENDORMIN [Concomitant]
     Route: 048
  6. MAGMITT [Concomitant]
     Route: 048

REACTIONS (1)
  - RENAL IMPAIRMENT [None]
